FAERS Safety Report 25265054 (Version 1)
Quarter: 2025Q2

REPORT INFORMATION
  Report Type: Spontaneous
  Country: CA (occurrence: CA)
  Receive Date: 20250502
  Receipt Date: 20250502
  Transmission Date: 20250717
  Serious: Yes (Hospitalization, Other)
  Sender: Kenvue
  Company Number: CA-KENVUE-20250408241

PATIENT

DRUGS (3)
  1. IBUPROFEN [Suspect]
     Active Substance: IBUPROFEN
     Indication: Patent ductus arteriosus
     Dosage: LESS OR EQUAL 72 H OF AGE RECEIVE THREE DAILY DOSES OF 10, 5, AND 5 MG/KG
     Route: 048
  2. IBUPROFEN [Suspect]
     Active Substance: IBUPROFEN
     Dosage: MORE THAN 72 H PNA RECEIVE 20, 10, AND 10 MG/KG (HD)
     Route: 048
  3. IBUPROFEN [Suspect]
     Active Substance: IBUPROFEN
     Route: 048

REACTIONS (10)
  - Intraventricular haemorrhage [Unknown]
  - Bronchopulmonary dysplasia [Unknown]
  - Necrotising colitis [Unknown]
  - Intestinal perforation [Unknown]
  - Blood creatinine increased [Unknown]
  - Oliguria [Unknown]
  - Neurodevelopmental disorder [Unknown]
  - Periventricular leukomalacia [Unknown]
  - Off label use [Unknown]
  - Therapeutic response unexpected [Unknown]
